FAERS Safety Report 9208246 (Version 1)
Quarter: 2013Q2

REPORT INFORMATION
  Report Type: Other
  Country: GB (occurrence: GB)
  Receive Date: 20130403
  Receipt Date: 20130403
  Transmission Date: 20140414
  Serious: Yes (Hospitalization)
  Sender: FDA-Public Use
  Company Number: GB-WATSON-2013-05455

PATIENT
  Age: 35 Year
  Sex: Female

DRUGS (4)
  1. OMEPRAZOLE (UNKNOWN) [Suspect]
     Indication: PRODUCT USED FOR UNKNOWN INDICATION
     Dosage: 40 MG, DAILY
     Route: 048
  2. PROPRANOLOL HYDROCHLORIDE (AELLC) [Suspect]
     Indication: PRODUCT USED FOR UNKNOWN INDICATION
     Dosage: 10 MG, DAILY
     Route: 048
  3. THIAMINE [Concomitant]
     Indication: PRODUCT USED FOR UNKNOWN INDICATION
     Dosage: 50 MG, DAILY
     Route: 065
  4. SENNA                              /00142201/ [Concomitant]
     Indication: PRODUCT USED FOR UNKNOWN INDICATION
     Dosage: 150 MG, DAILY
     Route: 065

REACTIONS (9)
  - Alcohol use [Unknown]
  - Feeling guilty [Unknown]
  - Obsessive-compulsive disorder [Unknown]
  - Gait disturbance [Unknown]
  - Confusional state [Unknown]
  - Hallucination [Unknown]
  - Depressed mood [Unknown]
  - Delusional perception [Unknown]
  - Thinking abnormal [Unknown]
